FAERS Safety Report 20603621 (Version 1)
Quarter: 2022Q1

REPORT INFORMATION
  Report Type: Spontaneous
  Country: US (occurrence: None)
  Receive Date: 20220316
  Receipt Date: 20220316
  Transmission Date: 20220423
  Serious: Yes (Life-Threatening, Hospitalization)
  Sender: FDA-Public Use
  Company Number: None

PATIENT
  Age: 72 Year
  Sex: Male

DRUGS (2)
  1. WARFARIN SODIUM [Suspect]
     Active Substance: WARFARIN SODIUM
     Indication: Cerebrovascular accident
     Dates: start: 20051110
  2. WARFARIN SODIUM [Suspect]
     Active Substance: WARFARIN SODIUM
     Indication: Prophylaxis

REACTIONS (8)
  - Haemorrhage intracranial [None]
  - Fall [None]
  - Head injury [None]
  - Subarachnoid haemorrhage [None]
  - Intraventricular haemorrhage [None]
  - Subdural haematoma [None]
  - International normalised ratio increased [None]
  - Mental status changes [None]

NARRATIVE: CASE EVENT DATE: 20220301
